FAERS Safety Report 8010695 (Version 2)
Quarter: 2013Q2

REPORT INFORMATION
  Report Type: Report from Study
  Country: DE (occurrence: DE)
  Receive Date: 20110627
  Receipt Date: 20130612
  Transmission Date: 20140414
  Serious: Yes (Hospitalization)
  Sender: FDA-Public Use
  Company Number: DE-MILLENNIUM PHARMACEUTICALS, INC.-2010-05090

PATIENT
  Sex: 0

DRUGS (26)
  1. VELCADE [Suspect]
     Indication: PLASMA CELL MYELOMA
     Dosage: 2.3 MG, UNK
     Route: 042
     Dates: start: 20100709
  2. FORTECORTIN [Suspect]
     Indication: PLASMA CELL MYELOMA
     Dosage: 20 MG, UNK
     Route: 048
     Dates: start: 20100709
  3. ENDOXAN [Suspect]
     Indication: PLASMA CELL MYELOMA
     Dosage: 50 MG, UNK
     Route: 048
     Dates: start: 20100709
  4. ACETYLSALICYLIC ACID [Concomitant]
     Indication: HYPERTENSIVE HEART DISEASE
     Dosage: 100 MG, QD
     Route: 048
     Dates: start: 2006
  5. SIMVASTATIN [Concomitant]
     Indication: HYPERLIPIDAEMIA
     Dosage: 20 MG, QD
     Route: 048
     Dates: start: 2006
  6. LEVOTHYROXINE [Concomitant]
     Indication: HYPOTHYROIDISM
     Dosage: 50 UG, QD
     Route: 048
     Dates: start: 200510
  7. METOPROLOL [Concomitant]
     Indication: HYPERTENSION
     Dosage: 100 MG, BID
     Route: 048
     Dates: start: 200609
  8. OPIPRAMOL [Concomitant]
     Indication: ANXIETY
     Dosage: 50 MG, QD
     Route: 048
     Dates: start: 200903
  9. PANTOPRAZOL [Concomitant]
     Indication: OESOPHAGITIS
     Dosage: 40 MG, QD
     Route: 048
     Dates: start: 20100810
  10. ACICLOVIR [Concomitant]
     Dosage: 400 MG, TID
     Route: 048
     Dates: start: 20100714
  11. ACICLOVIR [Concomitant]
     Dosage: UNK
     Route: 061
     Dates: start: 20100713
  12. ACICLOVIR [Concomitant]
     Dosage: 200 MG, UNK
     Route: 048
     Dates: start: 20100715, end: 20100717
  13. ACICLOVIR [Concomitant]
     Dosage: 400 MG, UNK
     Route: 048
     Dates: start: 20100718, end: 20100720
  14. COTRIM FORTE EU RHO [Concomitant]
     Dosage: 960 MG, UNK
     Route: 048
     Dates: start: 20100724
  15. METOCLOPRAMIDE [Concomitant]
     Indication: NAUSEA
     Dosage: 20 UNK, UNK
     Route: 048
     Dates: start: 20100706, end: 20100810
  16. METOCLOPRAMIDE [Concomitant]
     Indication: PROPHYLAXIS
  17. LACTULOSE [Concomitant]
     Indication: CONSTIPATION
     Dosage: 10 MG, UNK
     Route: 048
     Dates: start: 20100830, end: 20100830
  18. MACROGOL [Concomitant]
     Indication: CONSTIPATION
     Dosage: UNK
     Route: 048
     Dates: start: 20100713
  19. BISACODYL [Concomitant]
     Indication: CONSTIPATION
     Dosage: 5 MG, QD
     Route: 048
     Dates: start: 20100830, end: 20100830
  20. AMLODIPIN                          /00972401/ [Concomitant]
     Indication: HYPERTENSION
     Dosage: 5 MG, UNK
     Route: 048
     Dates: start: 200609, end: 20100719
  21. OMEPRAZOLE [Concomitant]
     Indication: OESOPHAGITIS
     Dosage: 40 MG, UNK
     Route: 048
     Dates: start: 201004, end: 20100719
  22. POTASSIUM CITRATE [Concomitant]
     Indication: HYPOKALAEMIA
     Dosage: UNK
     Route: 048
     Dates: start: 20100707, end: 20100719
  23. ENOXAPARIN [Concomitant]
     Indication: PROPHYLAXIS
     Dosage: 40 MG, UNK
     Route: 058
     Dates: start: 20100707, end: 20100719
  24. FLUCONAZOLE [Concomitant]
     Indication: FUNGAL OESOPHAGITIS
     Dosage: 10 ML, UNK
     Route: 048
     Dates: start: 20100713, end: 20100713
  25. FLUCONAZOLE [Concomitant]
     Dosage: 5 ML, UNK
     Route: 048
     Dates: start: 20100714, end: 20100719
  26. JONOSTERIL                         /00351401/ [Concomitant]
     Indication: DEHYDRATION
     Dosage: 1000 ML, UNK
     Route: 042
     Dates: start: 20100706, end: 20100716

REACTIONS (2)
  - Polyneuropathy [Recovered/Resolved]
  - Fatigue [Recovered/Resolved]
